FAERS Safety Report 7805639-9 (Version None)
Quarter: 2011Q4

REPORT INFORMATION
  Report Type: 
  Country: None (occurrence: None)
  Receive Date: 20111010
  Receipt Date: 20110929
  Transmission Date: 20120403
  Serious: Yes (Hospitalization)
  Sender: FDA-Public Use
  Company Number: US-ASTRAZENECA-2011SE55744

PATIENT
  Age: 80 Year
  Sex: Female
  Weight: 61.7 kg

DRUGS (21)
  1. CARDIZEM [Concomitant]
     Indication: BLOOD PRESSURE ABNORMAL
  2. GLUBITOR [Concomitant]
     Indication: BLOOD GLUCOSE ABNORMAL
  3. ALBUTEROL [Concomitant]
     Dosage: 1 OR 2 PUFFS AS NEEDED
  4. RESTASIS [Concomitant]
     Dosage: 0.4ML TAKEN AS 2 DROPS FOR EACH EYE TWICE A DAY
  5. HYDROCHLOROTHIAZIDE [Concomitant]
     Indication: BLOOD PRESSURE ABNORMAL
  6. VITAMIN D [Concomitant]
     Dosage: 50000 UNITS
  7. PULMICORT FLEXHALER [Suspect]
     Indication: CHRONIC OBSTRUCTIVE PULMONARY DISEASE
     Route: 055
     Dates: start: 20110801
  8. SULINDAC [Concomitant]
     Indication: ARTHRITIS
     Dates: start: 19670101
  9. INTEGRA [Concomitant]
     Indication: IRON DEFICIENCY
     Dosage: DAILY
  10. VERAMYST [Concomitant]
     Indication: NASAL CONGESTION
     Route: 045
  11. PATADAY [Concomitant]
     Dosage: DAILY
  12. NEXIUM [Suspect]
     Route: 048
     Dates: start: 20100101
  13. CARDIZEM [Concomitant]
     Indication: CARDIAC DISORDER
  14. TRICOR [Concomitant]
  15. VERAMYST [Concomitant]
     Indication: MULTIPLE ALLERGIES
     Route: 045
  16. SYNTHROID [Concomitant]
  17. POTASSIUM CHLORIDE [Concomitant]
  18. NAROPIN [Concomitant]
     Indication: NEUROPATHY PERIPHERAL
     Dosage: 300 MG DAILY TID
     Dates: start: 20060101
  19. CALCIUM CARBONATE [Concomitant]
  20. ALDACTONE [Concomitant]
     Indication: BLOOD PRESSURE ABNORMAL
  21. COLISTIN [Concomitant]
     Indication: CHOLINERGIC SYNDROME
     Dosage: 1 GM TID

REACTIONS (6)
  - CEREBROVASCULAR ACCIDENT [None]
  - EYE INJURY [None]
  - FALL [None]
  - CEREBRAL HAEMORRHAGE [None]
  - BRAIN INJURY [None]
  - AMNESIA [None]
